FAERS Safety Report 8600759-3 (Version None)
Quarter: 2012Q3

REPORT INFORMATION
  Report Type: 
  Country: None (occurrence: None)
  Receive Date: 20120806
  Receipt Date: 20120720
  Transmission Date: 20120928
  Serious: Yes (Other)
  Sender: FDA-Public Use
  Company Number: 2012000146

PATIENT
  Age: 62 Year
  Sex: Male
  Weight: 120 kg

DRUGS (6)
  1. IBUPROFENE (IBUPROFEN) [Concomitant]
  2. TAMSULOSIN HYDROCHLORIDE [Suspect]
     Indication: PROSTATIC ADENOMA
     Dosage: 1 DF, QD
  3. ACEON [Suspect]
     Indication: HYPERTENSION
     Dosage: 5 MG, QD, ORAL
     Route: 048
     Dates: start: 20090101, end: 20120611
  4. ACEON [Suspect]
     Indication: HYPERTENSION
     Dosage: 5 MG, QD, ORAL
     Route: 048
     Dates: start: 20120611
  5. SECTRAL [Concomitant]
  6. LANSOPRAZOLE [Concomitant]

REACTIONS (2)
  - PERTUSSIS [None]
  - BRONCHOSPASM [None]
